FAERS Safety Report 11247832 (Version 1)
Quarter: 2015Q3

REPORT INFORMATION
  Report Type: Spontaneous
  Country: NO (occurrence: NO)
  Receive Date: 20150708
  Receipt Date: 20150708
  Transmission Date: 20151125
  Serious: Yes (Hospitalization)
  Sender: FDA-Public Use
  Company Number: NO-TEVA-574245ISR

PATIENT
  Sex: Male

DRUGS (5)
  1. ATACAND PLUS [Concomitant]
     Active Substance: CANDESARTAN CILEXETIL\HYDROCHLOROTHIAZIDE
     Dosage: 16 MG CANDESARTAN, 12,5 MG HYDROCHLOROTHIAZIDE
  2. ATORVASTATIN [Suspect]
     Active Substance: ATORVASTATIN
     Indication: HYPERCHOLESTEROLAEMIA
     Route: 048
  3. METOPROLOL [Concomitant]
     Active Substance: METOPROLOL
  4. LOSEC [Concomitant]
     Active Substance: OMEPRAZOLE
  5. ALBYL-E [Concomitant]
     Active Substance: ASPIRIN\MAGNESIUM OXIDE

REACTIONS (4)
  - Fall [Recovered/Resolved with Sequelae]
  - Product substitution issue [Unknown]
  - Sensory loss [Unknown]
  - Tremor [Unknown]
